FAERS Safety Report 8756079 (Version 1)
Quarter: 2012Q4

REPORT INFORMATION
  Report Type: 
  Country: US (occurrence: US)
  Receive Date: 20120828
  Receipt Date: 20120828
  Transmission Date: 20130627
  Serious: No
  Sender: FDA-Public Use
  Company Number: US-PFIZER INC-2012207716

PATIENT
  Age: 45 Year
  Sex: Male
  Weight: 106.58 kg

DRUGS (1)
  1. NORVASC [Suspect]
     Dosage: UNK, 1x/day
     Route: 048

REACTIONS (4)
  - Memory impairment [Not Recovered/Not Resolved]
  - Memory impairment [Not Recovered/Not Resolved]
  - Sluggishness [Not Recovered/Not Resolved]
  - Bradyphrenia [Not Recovered/Not Resolved]
